FAERS Safety Report 9967216 (Version 1)
Quarter: 2014Q1

REPORT INFORMATION
  Report Type: Report from Study
  Country: PR (occurrence: PR)
  Receive Date: 20140305
  Receipt Date: 20140305
  Transmission Date: 20141002
  Serious: No
  Sender: FDA-Public Use
  Company Number: PR-ABBVIE-13P-131-1143747-00

PATIENT
  Age: 11 Year
  Sex: Male
  Weight: 39.5 kg

DRUGS (3)
  1. HUMIRA [Suspect]
     Indication: CROHN^S DISEASE
     Dates: start: 20130817
  2. NEXIUM [Concomitant]
     Indication: GASTRITIS
     Route: 048
  3. FLAGYL [Concomitant]
     Indication: CROHN^S DISEASE
     Route: 048

REACTIONS (1)
  - Nasopharyngitis [Recovered/Resolved]
